FAERS Safety Report 15482782 (Version 1)
Quarter: 2018Q4

REPORT INFORMATION
  Report Type: Spontaneous
  Country: US (occurrence: US)
  Receive Date: 20181010
  Receipt Date: 20181010
  Transmission Date: 20190205
  Serious: No
  Sender: FDA-Public Use
  Company Number: US-BAUSCH-BL-2018-013315

PATIENT
  Sex: Female

DRUGS (2)
  1. DILTIAZEM HCL ER CAPSULES [Suspect]
     Active Substance: DILTIAZEM HYDROCHLORIDE
     Indication: HEART RATE IRREGULAR
     Route: 048
  2. DILTIAZEM HCL ER CAPSULES [Suspect]
     Active Substance: DILTIAZEM HYDROCHLORIDE
     Indication: PRODUCT USE IN UNAPPROVED INDICATION

REACTIONS (2)
  - Drug effect incomplete [Not Recovered/Not Resolved]
  - Product use in unapproved indication [Not Recovered/Not Resolved]
